FAERS Safety Report 6706513-1 (Version None)
Quarter: 2010Q2

REPORT INFORMATION
  Report Type: 
  Country: None (occurrence: None)
  Receive Date: 20100503
  Receipt Date: 20100427
  Transmission Date: 20101027
  Serious: Yes (Death, Hospitalization)
  Sender: FDA-Public Use
  Company Number: PHHY2010US26126

PATIENT
  Sex: Male
  Weight: 90 kg

DRUGS (1)
  1. EXJADE [Suspect]
     Indication: ACUTE MYELOID LEUKAEMIA
     Dosage: 1750 MG/DAY
     Route: 048
     Dates: start: 20100217

REACTIONS (2)
  - DEATH [None]
  - MALAISE [None]
